FAERS Safety Report 25253317 (Version 1)
Quarter: 2025Q2

REPORT INFORMATION
  Report Type: Report from Study
  Country: FI (occurrence: FI)
  Receive Date: 20250430
  Receipt Date: 20250430
  Transmission Date: 20250717
  Serious: Yes (Hospitalization)
  Sender: ABBVIE
  Company Number: FI-ABBVIE-6144983

PATIENT
  Age: 72 Year
  Sex: Female
  Weight: 66 kg

DRUGS (12)
  1. FOSCARBIDOPA\FOSLEVODOPA [Suspect]
     Active Substance: FOSCARBIDOPA\FOSLEVODOPA
     Indication: Parkinson^s disease
     Route: 058
  2. FOSCARBIDOPA\FOSLEVODOPA [Suspect]
     Active Substance: FOSCARBIDOPA\FOSLEVODOPA
     Route: 058
     Dates: start: 202411
  3. FOSCARBIDOPA\FOSLEVODOPA [Suspect]
     Active Substance: FOSCARBIDOPA\FOSLEVODOPA
     Route: 058
     Dates: start: 20241127
  4. Panadol forte [Concomitant]
     Indication: Product used for unknown indication
  5. PRAMIPEXOLE DIHYDROCHLORIDE [Concomitant]
     Active Substance: PRAMIPEXOLE DIHYDROCHLORIDE
     Indication: Parkinson^s disease
     Route: 048
     Dates: start: 20200904
  6. POLYETHYLENE GLYCOL 4000 [Concomitant]
     Active Substance: POLYETHYLENE GLYCOL 4000
     Indication: Product used for unknown indication
  7. Hipeksal [Concomitant]
     Indication: Product used for unknown indication
  8. Beclonasal forte aqua [Concomitant]
     Indication: Product used for unknown indication
  9. Terolut [Concomitant]
     Indication: Product used for unknown indication
  10. ESTRADIOL [Concomitant]
     Active Substance: ESTRADIOL
     Indication: Product used for unknown indication
  11. LACTULOSE [Concomitant]
     Active Substance: LACTULOSE
     Indication: Product used for unknown indication
  12. CALCIUM\CHOLECALCIFEROL [Concomitant]
     Active Substance: CALCIUM\CHOLECALCIFEROL
     Indication: Product used for unknown indication

REACTIONS (5)
  - Patient dissatisfaction with treatment [Recovered/Resolved]
  - Infusion site inflammation [Not Recovered/Not Resolved]
  - Drug ineffective [Not Recovered/Not Resolved]
  - Infusion site erythema [Not Recovered/Not Resolved]
  - On and off phenomenon [Recovered/Resolved]

NARRATIVE: CASE EVENT DATE: 20240101
